FAERS Safety Report 9221950 (Version 1)
Quarter: 2013Q2

REPORT INFORMATION
  Report Type: Spontaneous
  Country: US (occurrence: US)
  Receive Date: 20130410
  Receipt Date: 20130410
  Transmission Date: 20140414
  Serious: No
  Sender: FDA-Public Use
  Company Number: US-PFIZER INC-2013108854

PATIENT
  Age: 62 Year
  Sex: Female
  Weight: 48.98 kg

DRUGS (2)
  1. LEVOXYL [Suspect]
     Indication: BASEDOW^S DISEASE
     Dosage: 0.100 MG, 1X/DAY
     Route: 048
  2. RADIOACTIVE IODINE SOLUTION [Concomitant]
     Indication: BASEDOW^S DISEASE
     Dosage: UNK

REACTIONS (4)
  - Blood test abnormal [Unknown]
  - Depression [Not Recovered/Not Resolved]
  - Feeling abnormal [Not Recovered/Not Resolved]
  - Sluggishness [Not Recovered/Not Resolved]
